FAERS Safety Report 25339010 (Version 3)
Quarter: 2025Q4

REPORT INFORMATION
  Report Type: Spontaneous
  Country: JP (occurrence: JP)
  Receive Date: 20250521
  Receipt Date: 20251001
  Transmission Date: 20260117
  Serious: Yes (Death, Hospitalization, Other)
  Sender: TAKEDA
  Company Number: JP-TAKEDA-2025TJP004723

PATIENT

DRUGS (3)
  1. FRUZAQLA [Suspect]
     Active Substance: FRUQUINTINIB
     Indication: Colon cancer
     Dosage: 3 MILLIGRAM
  2. FRUZAQLA [Suspect]
     Active Substance: FRUQUINTINIB
     Dosage: 3 MILLIGRAM, BID
     Dates: start: 20250516, end: 20250516
  3. FRUZAQLA [Suspect]
     Active Substance: FRUQUINTINIB
     Dosage: 3 MILLIGRAM

REACTIONS (4)
  - Delirium [Unknown]
  - Colon cancer [Fatal]
  - Malaise [Unknown]
  - Accidental overdose [Unknown]

NARRATIVE: CASE EVENT DATE: 20250516
